FAERS Safety Report 22687488 (Version 7)
Quarter: 2024Q4

REPORT INFORMATION
  Report Type: Report from Study
  Country: US (occurrence: US)
  Receive Date: 20230710
  Receipt Date: 20241111
  Transmission Date: 20250115
  Serious: Yes (Other)
  Sender: NOVARTIS
  Company Number: US-002147023-NVSC2023US152378

PATIENT
  Sex: Female

DRUGS (1)
  1. KESIMPTA [Suspect]
     Active Substance: OFATUMUMAB
     Indication: Relapsing multiple sclerosis
     Dosage: 20 MG, QMO
     Route: 058
     Dates: start: 20230126

REACTIONS (12)
  - Multiple sclerosis [Not Recovered/Not Resolved]
  - Fatigue [Unknown]
  - Gait disturbance [Unknown]
  - Temperature intolerance [Unknown]
  - Pancreatic cyst [Unknown]
  - COVID-19 [Recovering/Resolving]
  - Rib fracture [Not Recovered/Not Resolved]
  - Fall [Unknown]
  - Sleep disorder [Unknown]
  - Dyspnoea [Unknown]
  - Polyp [Unknown]
  - Heavy menstrual bleeding [Unknown]
